FAERS Safety Report 8392805-X (Version None)
Quarter: 2012Q2

REPORT INFORMATION
  Report Type: 
  Country: None (occurrence: None)
  Receive Date: 20120529
  Receipt Date: 20120514
  Transmission Date: 20120825
  Serious: No
  Sender: FDA-Public Use
  Company Number: US-ASTRAZENECA-2011SE65629

PATIENT
  Age: 70 Year
  Sex: Female

DRUGS (1)
  1. ANASTROZOLE [Suspect]
     Route: 048

REACTIONS (3)
  - DRUG INTOLERANCE [None]
  - PAIN IN EXTREMITY [None]
  - PAIN [None]
